FAERS Safety Report 9160004 (Version 1)
Quarter: 2013Q1

REPORT INFORMATION
  Report Type: Spontaneous
  Country: US (occurrence: US)
  Receive Date: 20130313
  Receipt Date: 20130313
  Transmission Date: 20140127
  Serious: Yes (Other)
  Sender: FDA-Public Use
  Company Number: US-ELI_LILLY_AND_COMPANY-US201303001797

PATIENT
  Sex: Male

DRUGS (1)
  1. EFFIENT [Suspect]
     Indication: TRANSIENT ISCHAEMIC ATTACK
     Dosage: 10 MG, UNK
     Dates: start: 20130227, end: 20130228

REACTIONS (2)
  - Brain neoplasm [Not Recovered/Not Resolved]
  - Off label use [Recovered/Resolved]
